FAERS Safety Report 6079096-X (Version None)
Quarter: 2009Q1

REPORT INFORMATION
  Report Type: 
  Country: None (occurrence: None)
  Receive Date: 20090216
  Receipt Date: 20090206
  Transmission Date: 20090719
  Serious: Yes (Death, Hospitalization)
  Sender: FDA-Public Use
  Company Number: A0699220A

PATIENT
  Age: 60 Year
  Sex: Male
  Weight: 84.1 kg

DRUGS (7)
  1. AVANDIA [Suspect]
     Dosage: 2MG PER DAY
     Route: 048
     Dates: start: 20050101, end: 20051028
  2. AVANDAMET [Suspect]
     Dosage: 500MG TWICE PER DAY
     Route: 048
     Dates: start: 20040816, end: 20050406
  3. GLUCOPHAGE [Concomitant]
  4. METFORMIN HCL [Concomitant]
  5. AVAPRO [Concomitant]
  6. CALCIUM [Concomitant]
  7. AUGMENTIN '125' [Concomitant]

REACTIONS (4)
  - ARTERIAL THROMBOSIS [None]
  - ATRIAL FIBRILLATION [None]
  - CEREBRAL INFARCTION [None]
  - CEREBROVASCULAR ACCIDENT [None]
